FAERS Safety Report 9483677 (Version 2)
Quarter: 2013Q3

REPORT INFORMATION
  Report Type: Spontaneous
  Country: CA (occurrence: CA)
  Receive Date: 20130828
  Receipt Date: 20130828
  Transmission Date: 20140515
  Serious: Yes (Hospitalization)
  Sender: FDA-Public Use
  Company Number: CA-AMGEN-KDL273959

PATIENT
  Age: 31 Year
  Sex: Female

DRUGS (6)
  1. ENBREL [Suspect]
     Indication: RHEUMATOID ARTHRITIS
     Dosage: UNK UNK, QWK
     Route: 058
     Dates: start: 20080219
  2. METHOTREXATE [Concomitant]
     Dosage: UNK UNK, UNK
  3. FOLIC ACID [Concomitant]
     Dosage: 5 MG, QD
  4. ACETAMINOPHEN W/OXYCODONE [Concomitant]
     Dosage: UNK UNK, PRN
  5. KETOROLAC [Concomitant]
     Dosage: UNK UNK, PRN
  6. UNSPECIFIED MEDICATION [Concomitant]
     Dosage: UNK UNK, UNK

REACTIONS (3)
  - Pleural effusion [Unknown]
  - Cardiac disorder [Unknown]
  - Alopecia [Not Recovered/Not Resolved]
